FAERS Safety Report 4356342-1 (Version None)
Quarter: 2004Q2

REPORT INFORMATION
  Report Type: 
  Country: None (occurrence: None)
  Receive Date: 20040506
  Receipt Date: 20040423
  Transmission Date: 20050107
  Serious: Yes (Other)
  Sender: FDA-Public Use
  Company Number: US-SHR-04-020243

PATIENT
  Age: 37 Year
  Sex: Female

DRUGS (1)
  1. YASMIN [Suspect]
     Indication: MENORRHAGIA
     Dosage: 1 TAB (S), 1X/DAY, ORAL
     Route: 048
     Dates: start: 20020201, end: 20040201

REACTIONS (2)
  - GENITAL CYST [None]
  - HYPERHIDROSIS [None]
